FAERS Safety Report 5165078-9 (Version None)
Quarter: 2006Q4

REPORT INFORMATION
  Report Type: 
  Country: None (occurrence: None)
  Receive Date: 20061124
  Receipt Date: 20061110
  Transmission Date: 20070319
  Serious: Yes (Hospitalization)
  Sender: FDA-Public Use
  Company Number: 2006126627

PATIENT
  Age: 59 Year
  Sex: Male
  Weight: 72.4 kg

DRUGS (2)
  1. DOXAZOSIN MESYLATE [Suspect]
     Indication: HYPERTENSION
     Dosage: 2 MG (1 IN 1 D), ORAL
     Route: 048
     Dates: start: 19990906, end: 20060831
  2. NORVASC [Suspect]
     Indication: HYPERTENSION
     Dosage: 5 MG (1 IN 1 D), ORAL
     Route: 048
     Dates: start: 19980407, end: 20060808

REACTIONS (4)
  - DRUG ERUPTION [None]
  - LICHEN PLANUS [None]
  - PRURITUS [None]
  - THERAPY NON-RESPONDER [None]
